FAERS Safety Report 11885542 (Version 1)
Quarter: 2016Q1

REPORT INFORMATION
  Report Type: Spontaneous
  Country: CH (occurrence: CH)
  Receive Date: 20160104
  Receipt Date: 20160104
  Transmission Date: 20160526
  Serious: Yes (Hospitalization)
  Sender: FDA-Public Use
  Company Number: CH-PFIZER INC-2015476408

PATIENT
  Age: 92 Year
  Sex: Female

DRUGS (16)
  1. GLANDOSANE /01287301/ [Concomitant]
     Dosage: UNK
     Dates: end: 20151207
  2. EUTHYROX [Concomitant]
     Active Substance: LEVOTHYROXINE SODIUM
     Indication: HYPOTHYROIDISM
     Dosage: 0.05 MG, DAILY (50 MCG 1.5/DAY)
  3. TEMESTA /00273201/ [Concomitant]
     Active Substance: LORAZEPAM
     Dosage: 1 MG, UNK (0.5 USUALLY)
     Route: 060
     Dates: end: 20151207
  4. BELOC [Concomitant]
     Active Substance: METOPROLOL TARTRATE
     Dosage: 100 MG, DAILY
  5. NOVALGIN [Concomitant]
     Active Substance: METAMIZOLE SODIUM
     Indication: PAIN
     Dosage: 500 MG, UNK (20 DROPS USUALLY)
     Route: 048
     Dates: end: 20151207
  6. ASPIRIN CARDIO [Concomitant]
     Active Substance: ASPIRIN
     Dosage: 100 MG, DAILY
  7. PANTOZOL [Suspect]
     Active Substance: PANTOPRAZOLE SODIUM
     Indication: GASTRITIS PROPHYLAXIS
     Dosage: 40 MG, DAILY
     Route: 048
     Dates: start: 201507, end: 20151208
  8. AMLODIPINE [Concomitant]
     Active Substance: AMLODIPINE BESYLATE
     Indication: HYPERTENSION
     Dosage: 10 MG, UNK
  9. DAFALGAN [Concomitant]
     Active Substance: ACETAMINOPHEN
     Indication: PAIN
     Dosage: 500 MG, UNK
     Route: 048
     Dates: end: 20151207
  10. VI-DE 3 [Concomitant]
     Active Substance: CHOLECALCIFEROL
     Dosage: UNK (4500 UNITS/ML 10/DAY)
  11. NITRODERM [Concomitant]
     Active Substance: NITROGLYCERIN
     Indication: HYPERTENSION
     Dosage: 50 MG, UNK (10 MG USUALLY)
     Dates: end: 20151207
  12. PREDNISON GALEPHAM [Concomitant]
     Dosage: 20 MG, UNK (2X1.5/DAY)
  13. TRITTICO [Concomitant]
     Active Substance: TRAZODONE HYDROCHLORIDE
     Dosage: UNK (100+50 MG/DAY)
     Route: 048
  14. MEMANTIN SANDOZ [Suspect]
     Active Substance: MEMANTINE
     Indication: DEMENTIA
     Dosage: 20 MG, DAILY
     Route: 048
     Dates: start: 201509, end: 20151207
  15. SEROQUEL [Concomitant]
     Active Substance: QUETIAPINE FUMARATE
     Dosage: 25 MG, UNK (2X25 MG/DAY)
  16. STILNOX [Concomitant]
     Active Substance: ZOLPIDEM TARTRATE
     Dosage: 10 MG, UNK (0.5 USUALLY)
     Route: 048
     Dates: end: 20151207

REACTIONS (3)
  - Staphylococcal skin infection [Recovering/Resolving]
  - Dermatitis bullous [Recovering/Resolving]
  - Fixed drug eruption [Recovering/Resolving]

NARRATIVE: CASE EVENT DATE: 201511
